APPROVED DRUG PRODUCT: PREDNISONE
Active Ingredient: PREDNISONE
Strength: 1MG
Dosage Form/Route: TABLET;ORAL
Application: A040584 | Product #001 | TE Code: AB
Applicant: PH HEALTH LTD
Approved: Dec 21, 2004 | RLD: No | RS: No | Type: RX